FAERS Safety Report 11409822 (Version 1)
Quarter: 2015Q3

REPORT INFORMATION
  Report Type: Spontaneous
  Country: US (occurrence: None)
  Receive Date: 20150820
  Receipt Date: 20150820
  Transmission Date: 20151125
  Serious: Yes (Other)
  Sender: FDA-Public Use
  Company Number: None

PATIENT
  Age: 38 Year
  Sex: Male

DRUGS (5)
  1. BANZEL [Concomitant]
     Active Substance: RUFINAMIDE
  2. ONFI [Concomitant]
     Active Substance: CLOBAZAM
  3. TEGRETOL-XR [Concomitant]
     Active Substance: CARBAMAZEPINE
  4. FELBATOL [Concomitant]
     Active Substance: FELBAMATE
  5. SABRIL [Suspect]
     Active Substance: VIGABATRIN
     Indication: EPILEPSY
     Route: 048
     Dates: start: 20120730, end: 20150812

REACTIONS (3)
  - Visual field defect [None]
  - Disease recurrence [None]
  - Macular degeneration [None]
